FAERS Safety Report 7614159-6 (Version None)
Quarter: 2011Q3

REPORT INFORMATION
  Report Type: 
  Country: None (occurrence: None)
  Receive Date: 20110708
  Receipt Date: 20110629
  Transmission Date: 20111222
  Serious: Yes (Hospitalization)
  Sender: FDA-Public Use
  Company Number: 2010000444

PATIENT
  Age: 53 Year
  Sex: Female

DRUGS (15)
  1. ERLOTINIB HYDROCHLORIDE [Suspect]
     Indication: LUNG NEOPLASM MALIGNANT
     Dosage: 50 MG, UID/QD, ORAL; ORAL
     Route: 048
     Dates: start: 20080723
  2. MINOCYCLINE HCL [Concomitant]
  3. 4 LIFE TRANSFER FACTOR (TRANSFER FACTOR) [Concomitant]
  4. ZOFRAN [Concomitant]
  5. BEVACIZUMAB (BEVACIZUMAB) [Suspect]
     Indication: LUNG NEOPLASM MALIGNANT
     Dosage: 15 MG/KG, Q3W, IV NOS
     Route: 042
     Dates: start: 20080723, end: 20091224
  6. LORTAB (VICODIN) [Concomitant]
  7. THERA PLUS VITAMINS (MULTIVITAMINS WITH MINERALS) [Concomitant]
  8. LOVENOX [Concomitant]
  9. FENTANYL [Concomitant]
  10. PHENERGAN HCL [Concomitant]
  11. LEVAQUIN [Concomitant]
  12. ERLOTINIB HYDROCHLORIDE [Suspect]
     Indication: LUNG NEOPLASM MALIGNANT
     Dosage: ORAL
     Route: 048
     Dates: start: 20110418, end: 20110101
  13. BEVACIZUMAB (BEVACIZUMAB) [Suspect]
     Dates: end: 20110425
  14. LISINOPRIL [Concomitant]
  15. CIPRO [Concomitant]

REACTIONS (10)
  - FUNGAL SEPSIS [None]
  - CATHETER SITE INFECTION [None]
  - PLEURAL EFFUSION [None]
  - GASTROOESOPHAGEAL REFLUX DISEASE [None]
  - RASH [None]
  - BRONCHITIS VIRAL [None]
  - PULMONARY HYPERTENSION [None]
  - PERICARDIAL EFFUSION [None]
  - SEPSIS [None]
  - CANDIDIASIS [None]
